FAERS Safety Report 24667718 (Version 1)
Quarter: 2024Q4

REPORT INFORMATION
  Report Type: Spontaneous
  Country: CA (occurrence: CA)
  Receive Date: 20241127
  Receipt Date: 20241127
  Transmission Date: 20250114
  Serious: Yes (Other)
  Sender: AUROBINDO
  Company Number: CA-AUROBINDO-AUR-APL-2024-058032

PATIENT
  Age: 3 Year
  Sex: Female

DRUGS (4)
  1. TRANEXAMIC ACID [Suspect]
     Active Substance: TRANEXAMIC ACID
     Indication: Acquired haemophilia
     Dosage: UNK
     Route: 065
  2. METHYLPREDNISOLONE [Suspect]
     Active Substance: METHYLPREDNISOLONE
     Indication: Acquired haemophilia
     Dosage: 30 MILLIGRAM/KILOGRAM, ONCE A DAY
     Route: 042
  3. COAGULATION FACTOR VIIA RECOMBINANT HUMAN [Suspect]
     Active Substance: COAGULATION FACTOR VIIA RECOMBINANT HUMAN
     Indication: Acquired haemophilia
     Dosage: 40 MICROGRAM/KILOGRAM (SUBSEQUENTLY INCREASING TO EVERY 4 HOURS, THEN EVERY 2 HOURS)
     Route: 065
  4. COAGULATION FACTOR VIIA RECOMBINANT HUMAN [Suspect]
     Active Substance: COAGULATION FACTOR VIIA RECOMBINANT HUMAN
     Dosage: 40 MICROGRAM/KILOGRAM (SUBSEQUENTLY INCREASING TO EVERY 4 HOURS, THEN EVERY 2 HOURS)
     Route: 065

REACTIONS (1)
  - Drug ineffective [Unknown]
